FAERS Safety Report 22153157 (Version 1)
Quarter: 2023Q1

REPORT INFORMATION
  Report Type: Spontaneous
  Country: US (occurrence: US)
  Receive Date: 20230329
  Receipt Date: 20230329
  Transmission Date: 20230417
  Serious: Yes (Other)
  Sender: FDA-Public Use
  Company Number: US-FreseniusKabi-FK202304117

PATIENT
  Age: 16 Year
  Sex: Male
  Weight: 88 kg

DRUGS (6)
  1. DEXMEDETOMIDINE [Suspect]
     Active Substance: DEXMEDETOMIDINE
     Indication: Induction of anaesthesia
     Dosage: TOTALING 32 MCG?INFUSION
  2. DEXMEDETOMIDINE [Suspect]
     Active Substance: DEXMEDETOMIDINE
     Dosage: 0.3 MCG/KG/H?SECOND HOUR
  3. PROPOFOL [Suspect]
     Active Substance: PROPOFOL
     Indication: Induction of anaesthesia
     Dosage: TOTALING 32 MCG
  4. SEVOFLURANE [Suspect]
     Active Substance: SEVOFLURANE
     Indication: Induction of anaesthesia
     Dosage: TOTALING 32 MCG
  5. REMIFENTANIL [Suspect]
     Active Substance: REMIFENTANIL
     Indication: Induction of anaesthesia
  6. KETAMINE [Suspect]
     Active Substance: KETAMINE
     Indication: Induction of anaesthesia

REACTIONS (1)
  - Diabetes insipidus [Recovered/Resolved]
